FAERS Safety Report 17987528 (Version 1)
Quarter: 2020Q3

REPORT INFORMATION
  Report Type: Spontaneous
  Country: CN (occurrence: CN)
  Receive Date: 20200707
  Receipt Date: 20200707
  Transmission Date: 20201103
  Serious: Yes (Hospitalization)
  Sender: FDA-Public Use
  Company Number: CN-GLAXOSMITHKLINE-CN2020APC114646

PATIENT
  Age: 59 Year
  Sex: Male
  Weight: 60 kg

DRUGS (1)
  1. ZINACEF [Suspect]
     Active Substance: CEFUROXIME SODIUM
     Indication: UPPER RESPIRATORY TRACT INFECTION
     Dosage: 250 MG, BID
     Route: 048
     Dates: start: 20200611, end: 20200615

REACTIONS (3)
  - Pruritus [Recovering/Resolving]
  - Erythema [Recovering/Resolving]
  - Blister [Unknown]

NARRATIVE: CASE EVENT DATE: 20200616
